FAERS Safety Report 4461963-1 (Version None)
Quarter: 2004Q3

REPORT INFORMATION
  Report Type: 
  Country: None (occurrence: None)
  Receive Date: 20040923
  Receipt Date: 20040914
  Transmission Date: 20050211
  Serious: Yes (Hospitalization, Other)
  Sender: FDA-Public Use
  Company Number: 2004233705JP

PATIENT
  Age: 60 Year
  Sex: Female

DRUGS (2)
  1. AROMASIN [Suspect]
     Indication: BREAST CANCER
     Dosage: 25MG, QD, ORAL
     Route: 048
     Dates: start: 20030901, end: 20030901
  2. METHOTREXATE [Suspect]
     Indication: BREAST CANCER
     Dosage: 100MG, QD, IV
     Route: 042
     Dates: start: 20030401, end: 20030901

REACTIONS (2)
  - EXANTHEM [None]
  - FEELING ABNORMAL [None]
